FAERS Safety Report 9835669 (Version 1)
Quarter: 2014Q1

REPORT INFORMATION
  Report Type: Spontaneous
  Country: US (occurrence: US)
  Receive Date: 20140122
  Receipt Date: 20140122
  Transmission Date: 20141002
  Serious: Yes (Other)
  Sender: FDA-Public Use
  Company Number: CHPA2014US000880

PATIENT
  Age: 58 Year
  Sex: Female

DRUGS (1)
  1. CONTROL PLP [Suspect]
     Indication: SMOKING CESSATION THERAPY
     Dosage: 21 MG, QD
     Route: 062
     Dates: start: 201311

REACTIONS (4)
  - Diabetes mellitus [Not Recovered/Not Resolved]
  - Anger [Unknown]
  - Stress [Unknown]
  - Incorrect drug administration duration [Unknown]
